FAERS Safety Report 25546918 (Version 1)
Quarter: 2025Q3

REPORT INFORMATION
  Report Type: Spontaneous
  Country: GB (occurrence: GB)
  Receive Date: 20250714
  Receipt Date: 20250714
  Transmission Date: 20251020
  Serious: Yes (Other)
  Sender: ALKEM
  Company Number: None

PATIENT

DRUGS (3)
  1. CEFUROXIME AXETIL [Suspect]
     Active Substance: CEFUROXIME AXETIL
     Indication: Product used for unknown indication
     Route: 065
  2. TEICOPLANIN [Suspect]
     Active Substance: TEICOPLANIN
     Indication: Product used for unknown indication
     Route: 065
  3. PENICILLIN G [Concomitant]
     Active Substance: PENICILLIN G
     Indication: Product used for unknown indication
     Route: 065

REACTIONS (1)
  - Anaphylactic reaction [Unknown]
